FAERS Safety Report 5345046-4 (Version None)
Quarter: 2007Q2

REPORT INFORMATION
  Report Type: 
  Country: None (occurrence: None)
  Receive Date: 20070425
  Receipt Date: 20060324
  Transmission Date: 20071010
  Serious: Yes (Other)
  Sender: FDA-Public Use
  Company Number: WAES 0601USA01146

PATIENT
  Age: 8 Year
  Sex: Male
  Weight: 22.6799 kg

DRUGS (3)
  1. SINGULAIR [Suspect]
     Indication: RHINITIS ALLERGIC
     Dosage: 5 MG/DAILY/PO
     Route: 048
     Dates: start: 20051227, end: 20060118
  2. ALLEGRA [Concomitant]
  3. NASONEX [Concomitant]

REACTIONS (1)
  - CONVULSION [None]
